FAERS Safety Report 17281499 (Version 1)
Quarter: 2020Q1

REPORT INFORMATION
  Report Type: Spontaneous
  Country: US (occurrence: US)
  Receive Date: 20200117
  Receipt Date: 20200117
  Transmission Date: 20200409
  Serious: No
  Sender: FDA-Public Use
  Company Number: US-ALLERGAN-1942855US

PATIENT
  Age: 87 Year
  Sex: Female
  Weight: 56.69 kg

DRUGS (3)
  1. UNSPECIFIED WATER PILLS [Concomitant]
     Active Substance: UNSPECIFIED INGREDIENT
  2. UNSPECIFIED BLOOD PRESSURE PILLS [Concomitant]
     Indication: BLOOD PRESSURE MEASUREMENT
  3. LEXAPRO [Suspect]
     Active Substance: ESCITALOPRAM OXALATE
     Indication: ANXIETY
     Dosage: 10 MG, QD
     Route: 048

REACTIONS (3)
  - Panic reaction [Not Recovered/Not Resolved]
  - Drug ineffective [Unknown]
  - Anxiety [Not Recovered/Not Resolved]
